FAERS Safety Report 8763058 (Version 1)
Quarter: 2012Q4

REPORT INFORMATION
  Report Type: Spontaneous
  Country: US (occurrence: None)
  Receive Date: 20120830
  Receipt Date: 20120830
  Transmission Date: 20130627
  Serious: Yes (Other)
  Sender: FDA-Public Use
  Company Number: None

PATIENT
  Age: 71 Year
  Sex: Female
  Weight: 62.6 kg

DRUGS (1)
  1. ENOXAPARIN SODIUM [Suspect]
     Indication: CLOT BLOOD
     Dosage: 90 ML
     Dates: start: 20110501, end: 20120828

REACTIONS (1)
  - Syringe issue [None]
